FAERS Safety Report 15766547 (Version 1)
Quarter: 2018Q4

REPORT INFORMATION
  Report Type: Spontaneous
  Country: FR (occurrence: FR)
  Receive Date: 20181227
  Receipt Date: 20181227
  Transmission Date: 20190205
  Serious: Yes (Other)
  Sender: FDA-Public Use
  Company Number: FR-TEVA-2018-FR-991705

PATIENT
  Age: 61 Year
  Sex: Female

DRUGS (5)
  1. DOXORUBICIN [Suspect]
     Active Substance: DOXORUBICIN
     Indication: SOFT TISSUE SARCOMA
     Dosage: DAY 1 AND 2; DAY 21 AND 22
     Route: 050
  2. CISPLATIN. [Suspect]
     Active Substance: CISPLATIN
     Dosage: DAY 1, 2 AND 3 (ONE ADDITIONAL CYCLE)
     Route: 050
  3. ETOPOSIDE. [Suspect]
     Active Substance: ETOPOSIDE
     Indication: SOFT TISSUE SARCOMA
     Dosage: DAY 1, 2 AND 3
     Route: 050
  4. IFOSFAMIDE. [Suspect]
     Active Substance: IFOSFAMIDE
     Indication: SOFT TISSUE SARCOMA
     Dosage: DAY 1 AND 2; DAY 21 AND 22
     Route: 050
  5. CISPLATIN. [Suspect]
     Active Substance: CISPLATIN
     Indication: SOFT TISSUE SARCOMA
     Dosage: DAY 1 AND 2 (2 CYCLES)
     Route: 050

REACTIONS (3)
  - Anaemia [Unknown]
  - Neutropenia [Unknown]
  - Cardiovascular disorder [Unknown]
